FAERS Safety Report 17025532 (Version 1)
Quarter: 2019Q4

REPORT INFORMATION
  Report Type: Spontaneous
  Country: JP (occurrence: JP)
  Receive Date: 20191113
  Receipt Date: 20191113
  Transmission Date: 20200122
  Serious: No
  Sender: FDA-Public Use
  Company Number: JP-ELI_LILLY_AND_COMPANY-JP201911003519

PATIENT
  Sex: Male

DRUGS (5)
  1. ZYPREXA [Concomitant]
     Active Substance: OLANZAPINE
     Route: 048
  2. HIBERNA [PROMETHAZINE HYDROCHLORIDE] [Concomitant]
     Route: 048
  3. LEXOTAN [Concomitant]
     Active Substance: BROMAZEPAM
     Route: 048
  4. DULOXETINE HYDROCHLORIDE. [Suspect]
     Active Substance: DULOXETINE HYDROCHLORIDE
     Indication: PRODUCT USED FOR UNKNOWN INDICATION
     Dosage: 30 MG
     Route: 048
     Dates: start: 201905
  5. SEROQUEL [Concomitant]
     Active Substance: QUETIAPINE FUMARATE
     Route: 048

REACTIONS (8)
  - Blood glucose increased [Unknown]
  - Nausea [Not Recovered/Not Resolved]
  - Blood alkaline phosphatase increased [Unknown]
  - Dysarthria [Unknown]
  - Irritability [Unknown]
  - Insomnia [Unknown]
  - Constipation [Unknown]
  - Trismus [Unknown]
